FAERS Safety Report 10086627 (Version 1)
Quarter: 2014Q2

REPORT INFORMATION
  Report Type: Spontaneous
  Country: US (occurrence: None)
  Receive Date: 20140417
  Receipt Date: 20140417
  Transmission Date: 20141212
  Serious: No
  Sender: FDA-Public Use
  Company Number: None

PATIENT
  Sex: Male

DRUGS (1)
  1. HUMIRA 40 MG [Suspect]
     Indication: ILL-DEFINED DISORDER
     Dosage: 40 MG Q2W SQ
     Route: 058
     Dates: start: 20120809

REACTIONS (1)
  - Anger [None]
